FAERS Safety Report 10098926 (Version 1)
Quarter: 2014Q2

REPORT INFORMATION
  Report Type: Spontaneous
  Country: US (occurrence: US)
  Receive Date: 20140423
  Receipt Date: 20140423
  Transmission Date: 20141212
  Serious: Yes (Hospitalization, Other)
  Sender: FDA-Public Use
  Company Number: US-ACTAVIS-2014-07737

PATIENT
  Age: 23 Year
  Sex: Male
  Weight: 9 kg

DRUGS (4)
  1. DIAZEPAM (WATSON LABORATORIES) [Suspect]
     Indication: AGITATION
     Dosage: UNK
     Route: 065
  2. LORAZEPAM (WATSON LABORATORIES) [Suspect]
     Indication: AGITATION
     Dosage: UNK
     Route: 065
  3. HALOPERIDOL [Concomitant]
     Indication: AGITATION
     Dosage: UNK
     Route: 065
  4. CLONIDINE [Concomitant]
     Indication: AGITATION
     Dosage: UNK
     Route: 065

REACTIONS (2)
  - Coma [Unknown]
  - Delirium [Unknown]
